FAERS Safety Report 11337831 (Version 1)
Quarter: 2015Q3

REPORT INFORMATION
  Report Type: Spontaneous
  Country: US (occurrence: US)
  Receive Date: 20150803
  Receipt Date: 20150803
  Transmission Date: 20151125
  Serious: No
  Sender: FDA-Public Use
  Company Number: US-ELI_LILLY_AND_COMPANY-US201001003209

PATIENT
  Age: 52 Year
  Sex: Female

DRUGS (8)
  1. ZYPREXA [Suspect]
     Active Substance: OLANZAPINE
     Dosage: 10 MG, DAILY (1/D)
     Dates: start: 20090914, end: 20100116
  2. ATIVAN [Concomitant]
     Active Substance: LORAZEPAM
     Dosage: UNK, UNKNOWN
  3. PLAQUENIL [Concomitant]
     Active Substance: HYDROXYCHLOROQUINE SULFATE
  4. CALCIUM [Concomitant]
     Active Substance: CALCIUM
  5. ZYPREXA [Suspect]
     Active Substance: OLANZAPINE
     Indication: MOVEMENT DISORDER
     Dosage: 5 MG, DAILY (1/D)
     Dates: start: 20090818
  6. ATIVAN [Concomitant]
     Active Substance: LORAZEPAM
     Dosage: 6 MG, DAILY (1/D)
  7. BACLOFEN. [Concomitant]
     Active Substance: BACLOFEN
  8. RENEDIL [Concomitant]
     Active Substance: FELODIPINE

REACTIONS (8)
  - Weight increased [Not Recovered/Not Resolved]
  - Dry mouth [Not Recovered/Not Resolved]
  - Drug ineffective [Unknown]
  - Dyskinesia [Not Recovered/Not Resolved]
  - Off label use [Recovered/Resolved]
  - Tardive dyskinesia [Unknown]
  - Constipation [Not Recovered/Not Resolved]
  - Tremor [Not Recovered/Not Resolved]

NARRATIVE: CASE EVENT DATE: 200908
